FAERS Safety Report 17516620 (Version 1)
Quarter: 2020Q1

REPORT INFORMATION
  Report Type: Spontaneous
  Country: PL (occurrence: PL)
  Receive Date: 20200309
  Receipt Date: 20200309
  Transmission Date: 20200409
  Serious: Yes (Other)
  Sender: FDA-Public Use
  Company Number: PL-MYLANLABS-2020M1023679

PATIENT
  Age: 60 Year
  Sex: Female

DRUGS (4)
  1. IMATINIB. [Suspect]
     Active Substance: IMATINIB MESYLATE
     Indication: CHRONIC MYELOID LEUKAEMIA
     Dosage: 400 MG, PER DAY
     Dates: start: 20110804
  2. IMATINIB. [Suspect]
     Active Substance: IMATINIB MESYLATE
     Dosage: 400 MG, PER DAY
  3. IMATINIB. [Suspect]
     Active Substance: IMATINIB MESYLATE
     Dosage: 300 MG, PER DAY
  4. NILOTINIB [Suspect]
     Active Substance: NILOTINIB
     Indication: PRODUCT USED FOR UNKNOWN INDICATION
     Dosage: 800 MG, PER DAY
     Dates: start: 20121124

REACTIONS (2)
  - Drug resistance [Recovered/Resolved]
  - Thrombocytopenia [Recovering/Resolving]
